FAERS Safety Report 24720924 (Version 1)
Quarter: 2024Q4

REPORT INFORMATION
  Report Type: Spontaneous
  Country: US (occurrence: US)
  Receive Date: 20241211
  Receipt Date: 20241211
  Transmission Date: 20250114
  Serious: Yes (Hospitalization)
  Sender: KARYOPHARM THERAPEUTICS
  Company Number: US-KARYOPHARM-2024KPT001867

PATIENT

DRUGS (13)
  1. XPOVIO [Suspect]
     Active Substance: SELINEXOR
     Indication: Plasma cell myeloma
     Dosage: 60 MG, WEEKLY
     Route: 048
     Dates: start: 20241203, end: 202412
  2. ACYCLOVIR [Concomitant]
     Active Substance: ACYCLOVIR
  3. CARDIZEM [Concomitant]
     Active Substance: DILTIAZEM HYDROCHLORIDE
  4. DEXAMETHASONE [Concomitant]
     Active Substance: DEXAMETHASONE
  5. ELIQUIS [Concomitant]
     Active Substance: APIXABAN
  6. FUROSEMIDE [Concomitant]
     Active Substance: FUROSEMIDE
  7. GEMFIBROZIL [Concomitant]
     Active Substance: GEMFIBROZIL
  8. KYPROLIS [Concomitant]
     Active Substance: CARFILZOMIB
  9. LEVOTHYROXINE [Concomitant]
     Active Substance: LEVOTHYROXINE
  10. METOPROLOL SUCCINATE [Concomitant]
     Active Substance: METOPROLOL SUCCINATE
  11. MYRBETRIQ [Concomitant]
     Active Substance: MIRABEGRON
  12. TAMSULOSIN [Concomitant]
     Active Substance: TAMSULOSIN
  13. ZETIA [Concomitant]
     Active Substance: EZETIMIBE

REACTIONS (2)
  - COVID-19 pneumonia [Unknown]
  - Muscular weakness [Unknown]

NARRATIVE: CASE EVENT DATE: 20241206
